FAERS Safety Report 24243885 (Version 4)
Quarter: 2024Q3

REPORT INFORMATION
  Report Type: Report from Study
  Country: CA (occurrence: CA)
  Receive Date: 20240823
  Receipt Date: 20240911
  Transmission Date: 20241016
  Serious: Yes (Other)
  Sender: DAIICHI
  Company Number: CA-AstraZeneca-2024A178950

PATIENT
  Sex: Female
  Weight: 52 kg

DRUGS (1)
  1. ENHERTU [Suspect]
     Active Substance: FAM-TRASTUZUMAB DERUXTECAN-NXKI
     Indication: HER2 positive breast cancer
     Dosage: 335 MG, ONCE EVERY 3 WK
     Route: 042
     Dates: start: 20230411

REACTIONS (5)
  - Haemoglobin abnormal [Unknown]
  - Fall [Unknown]
  - Haemoglobin decreased [Unknown]
  - Limb discomfort [Not Recovered/Not Resolved]
  - Malaise [Unknown]
